FAERS Safety Report 12590009 (Version 2)
Quarter: 2016Q3

REPORT INFORMATION
  Report Type: Spontaneous
  Country: JP (occurrence: JP)
  Receive Date: 20160725
  Receipt Date: 20160816
  Transmission Date: 20161109
  Serious: Yes (Hospitalization)
  Sender: FDA-Public Use
  Company Number: JP-UNICHEM LABORATORIES LIMITED-UCM201607-000160

PATIENT
  Sex: Female

DRUGS (5)
  1. SITAGLIPTIN [Concomitant]
     Active Substance: SITAGLIPTIN
  2. EDOXABAN [Concomitant]
     Active Substance: EDOXABAN TOSYLATE
  3. MELOXICAM. [Suspect]
     Active Substance: MELOXICAM
     Indication: PAIN
  4. LANSOPRAZOLE. [Suspect]
     Active Substance: LANSOPRAZOLE
     Indication: PAIN
  5. ALFACALCIDOL [Concomitant]
     Active Substance: ALFACALCIDOL

REACTIONS (1)
  - Colitis microscopic [Recovered/Resolved]
